FAERS Safety Report 17257182 (Version 1)
Quarter: 2020Q1

REPORT INFORMATION
  Report Type: Spontaneous
  Country: US (occurrence: US)
  Receive Date: 20200109
  Receipt Date: 20200109
  Transmission Date: 20200409
  Serious: Yes (Hospitalization)
  Sender: FDA-Public Use
  Company Number: None

PATIENT
  Age: 36 Year
  Sex: Female

DRUGS (1)
  1. EMPAGLIFLOZIN [Suspect]
     Active Substance: EMPAGLIFLOZIN
     Indication: TYPE 2 DIABETES MELLITUS
     Route: 048
     Dates: start: 20191118, end: 20191217

REACTIONS (11)
  - Skin fissures [None]
  - Ulcer [None]
  - Vulval disorder [None]
  - Candida infection [None]
  - Skin disorder [None]
  - Fournier^s gangrene [None]
  - Haemorrhage [None]
  - Burning sensation [None]
  - Gangrene [None]
  - Pain [None]
  - Skin infection [None]

NARRATIVE: CASE EVENT DATE: 20191217
